FAERS Safety Report 8555978-1 (Version None)
Quarter: 2012Q3

REPORT INFORMATION
  Report Type: 
  Country: None (occurrence: None)
  Receive Date: 20120801
  Receipt Date: 20101105
  Transmission Date: 20120928
  Serious: Yes (Hospitalization)
  Sender: FDA-Public Use
  Company Number: US-BAYER-201027512NA

PATIENT
  Age: 25 Year
  Sex: Female
  Weight: 65.909 kg

DRUGS (11)
  1. YAZ [Suspect]
     Route: 048
     Dates: start: 20091101
  2. DROSPIRENONE AND ETHINYL ESTRADIOL [Suspect]
     Route: 048
     Dates: start: 20091001, end: 20091215
  3. DROSPIRENONE AND ETHINYL ESTRADIOL [Suspect]
     Dosage: UNK
     Dates: start: 20091123
  4. FLUCONAZOLE [Concomitant]
     Route: 048
     Dates: start: 20091008
  5. IBUPROFEN [Concomitant]
     Indication: PAIN MANAGEMENT
     Route: 048
     Dates: start: 20090702
  6. MUCINEX [Concomitant]
     Indication: UNEVALUABLE EVENT
     Route: 048
     Dates: start: 20091022
  7. SULFAMETHOXAZOLE AND TRIMETHOPRIM [Concomitant]
     Route: 048
     Dates: start: 20091117
  8. CIPROFLAXACIN [Concomitant]
     Route: 048
     Dates: start: 20091125
  9. LOVENOX [Concomitant]
     Indication: PULMONARY EMBOLISM
     Route: 058
  10. YASMIN [Suspect]
     Route: 048
     Dates: start: 20091101
  11. ACETAMINOPHEN [Concomitant]

REACTIONS (8)
  - PULMONARY EMBOLISM [None]
  - PREGNANCY ON ORAL CONTRACEPTIVE [None]
  - PAIN [None]
  - DYSPNOEA [None]
  - HEMIPARESIS [None]
  - CHEST PAIN [None]
  - DIZZINESS [None]
  - NAUSEA [None]
